FAERS Safety Report 5931115-4 (Version None)
Quarter: 2008Q4

REPORT INFORMATION
  Report Type: 
  Country: None (occurrence: None)
  Receive Date: 20081027
  Receipt Date: 20081014
  Transmission Date: 20090506
  Serious: Yes (Hospitalization, Other)
  Sender: FDA-Public Use
  Company Number: PHHY2008BR24894

PATIENT

DRUGS (3)
  1. TRILEPTAL [Suspect]
     Indication: BIPOLAR DISORDER
     Dosage: 150 MG, UNK
  2. TRILEPTAL [Suspect]
     Dosage: 300 MG, UNK
  3. QUETIAPINE FUMARATE [Concomitant]
     Indication: BIPOLAR DISORDER

REACTIONS (5)
  - ERECTILE DYSFUNCTION [None]
  - MUSCLE DISORDER [None]
  - PENILE DYSPLASIA [None]
  - PRIAPISM [None]
  - WOUND DRAINAGE [None]
